FAERS Safety Report 6556911-4 (Version None)
Quarter: 2010Q1

REPORT INFORMATION
  Report Type: 
  Country: None (occurrence: None)
  Receive Date: 20100126
  Receipt Date: 20100112
  Transmission Date: 20100710
  Serious: Yes (Hospitalization)
  Sender: FDA-Public Use
  Company Number: 8054247

PATIENT
  Sex: Female

DRUGS (5)
  1. KEPPRA [Suspect]
     Dosage: 5 ML
     Dates: start: 20091029
  2. LUMINALETTEN [Concomitant]
  3. BACLOFEN [Concomitant]
  4. OMEPRAZOL AGEN [Concomitant]
  5. SODIUM BICARBONATE [Concomitant]

REACTIONS (6)
  - APATHY [None]
  - CONDITION AGGRAVATED [None]
  - EPILEPSY [None]
  - HEART RATE DECREASED [None]
  - HYPOTENSION [None]
  - PRODUCT FORMULATION ISSUE [None]
